FAERS Safety Report 13451798 (Version 1)
Quarter: 2017Q2

REPORT INFORMATION
  Report Type: Spontaneous
  Country: US (occurrence: US)
  Receive Date: 20170418
  Receipt Date: 20170418
  Transmission Date: 20170830
  Serious: Yes (Other)
  Sender: FDA-Public Use
  Company Number: None

PATIENT
  Age: 83 Year
  Sex: Female
  Weight: 76.2 kg

DRUGS (6)
  1. NEUROPATHY MEDICATIONS [Concomitant]
     Active Substance: UNSPECIFIED INGREDIENT
  2. BLOOD PRESSURE MEDICATION [Concomitant]
     Active Substance: UNSPECIFIED INGREDIENT
  3. THYROID MEDICATION [Concomitant]
     Active Substance: UNSPECIFIED INGREDIENT
  4. LEVAQUIN [Suspect]
     Active Substance: LEVOFLOXACIN
     Indication: INFLUENZA LIKE ILLNESS
     Route: 048
     Dates: start: 20170213, end: 20170219
  5. VITAMIN C [Concomitant]
     Active Substance: ASCORBIC ACID
  6. POTASSIUM [Concomitant]
     Active Substance: POTASSIUM

REACTIONS (5)
  - Peripheral swelling [None]
  - Contusion [None]
  - Fatigue [None]
  - Pain [None]
  - Tendon injury [None]

NARRATIVE: CASE EVENT DATE: 20170217
